FAERS Safety Report 19046774 (Version 1)
Quarter: 2021Q1

REPORT INFORMATION
  Report Type: Report from Study
  Country: NL (occurrence: NL)
  Receive Date: 20210323
  Receipt Date: 20210323
  Transmission Date: 20210420
  Serious: Yes (Death)
  Sender: FDA-Public Use
  Company Number: NL-ROCHE-2794283

PATIENT
  Age: 82 Year
  Sex: Female

DRUGS (2)
  1. PERTUZUMAB. [Suspect]
     Active Substance: PERTUZUMAB
     Indication: RECTAL CANCER
     Dosage: MOST RECENT ADMINISTRATION: 11/MAR/2021
     Route: 042
     Dates: start: 20200220
  2. TRASTUZUMAB. [Suspect]
     Active Substance: TRASTUZUMAB
     Indication: RECTAL CANCER
     Dosage: MOST RECENT ADMINISTRATION: 11/MAR/2021
     Route: 042
     Dates: start: 20200220

REACTIONS (1)
  - Death [Fatal]

NARRATIVE: CASE EVENT DATE: 20210317
